FAERS Safety Report 12345863 (Version 2)
Quarter: 2016Q2

REPORT INFORMATION
  Report Type: Report from Study
  Country: US (occurrence: US)
  Receive Date: 20160509
  Receipt Date: 20160530
  Transmission Date: 20160815
  Serious: Yes (Hospitalization)
  Sender: FDA-Public Use
  Company Number: US-GILEAD-2016-0212045

PATIENT
  Age: 56 Year
  Sex: Male
  Weight: 59.6 kg

DRUGS (7)
  1. AMBRISENTAN [Suspect]
     Active Substance: AMBRISENTAN
     Indication: RIGHT-TO-LEFT CARDIAC SHUNT
  2. AMBRISENTAN [Suspect]
     Active Substance: AMBRISENTAN
     Indication: HEART DISEASE CONGENITAL
  3. AMBRISENTAN [Suspect]
     Active Substance: AMBRISENTAN
     Indication: PULMONARY HYPERTENSION
     Dosage: 5 MG, QD
     Route: 048
     Dates: start: 20160413
  4. LASIX [Concomitant]
     Active Substance: FUROSEMIDE
  5. LISINOPRIL. [Concomitant]
     Active Substance: LISINOPRIL
  6. COREG [Concomitant]
     Active Substance: CARVEDILOL
  7. TADALAFIL [Concomitant]
     Active Substance: TADALAFIL

REACTIONS (1)
  - Gout [Not Recovered/Not Resolved]

NARRATIVE: CASE EVENT DATE: 20160427
